FAERS Safety Report 4894450-7 (Version None)
Quarter: 2006Q1

REPORT INFORMATION
  Report Type: 
  Country: None (occurrence: None)
  Receive Date: 20060127
  Receipt Date: 20050928
  Transmission Date: 20060701
  Serious: Yes (Hospitalization, Disabling)
  Sender: FDA-Public Use
  Company Number: US-ROCHE-419570

PATIENT
  Age: 21 Year
  Sex: Male
  Weight: 101.2 kg

DRUGS (2)
  1. ACCUTANE [Suspect]
     Indication: ACNE
     Dosage: ADMINISTERED IN THE EVENINGS.
     Route: 048
     Dates: start: 19960312, end: 19960815
  2. ERYTHROMYCIN [Concomitant]
     Indication: ACNE
     Route: 048
     Dates: start: 19960507, end: 19960703

REACTIONS (18)
  - ANHEDONIA [None]
  - ANXIETY [None]
  - ARTHRALGIA [None]
  - COLITIS [None]
  - COLITIS ULCERATIVE [None]
  - GASTROINTESTINAL DISORDER [None]
  - HERPES SIMPLEX [None]
  - HYPOAESTHESIA [None]
  - INFLAMMATORY BOWEL DISEASE [None]
  - INJURY [None]
  - INSOMNIA [None]
  - INTESTINAL HAEMORRHAGE [None]
  - IRRITABLE BOWEL SYNDROME [None]
  - PARAESTHESIA [None]
  - PERSONALITY DISORDER [None]
  - PHARMACEUTICAL PRODUCT COMPLAINT [None]
  - PROCTITIS ULCERATIVE [None]
  - SPONDYLOLYSIS [None]
